FAERS Safety Report 17798755 (Version 1)
Quarter: 2020Q2

REPORT INFORMATION
  Report Type: Spontaneous
  Country: US (occurrence: US)
  Receive Date: 20200518
  Receipt Date: 20200518
  Transmission Date: 20200714
  Serious: Yes (Other)
  Sender: FDA-Public Use
  Company Number: US-GILEAD-2020-0467057

PATIENT

DRUGS (1)
  1. STRIBILD [Suspect]
     Active Substance: COBICISTAT\ELVITEGRAVIR\EMTRICITABINE\TENOFOVIR DISOPROXIL FUMARATE
     Indication: PRODUCT USED FOR UNKNOWN INDICATION
     Dosage: UNK
     Route: 048
     Dates: start: 2015, end: 2017

REACTIONS (8)
  - Blood creatinine increased [Unknown]
  - Renal failure [Unknown]
  - Foot fracture [Unknown]
  - Bone density decreased [Unknown]
  - Humerus fracture [Unknown]
  - Fracture [Unknown]
  - Proteinuria [Unknown]
  - Haematuria [Unknown]
